FAERS Safety Report 10082322 (Version 1)
Quarter: 2014Q2

REPORT INFORMATION
  Report Type: Spontaneous
  Country: CN (occurrence: CN)
  Receive Date: 20140416
  Receipt Date: 20140416
  Transmission Date: 20141212
  Serious: Yes (Other)
  Sender: FDA-Public Use
  Company Number: CN-B.I. PHARMACEUTICALS,INC./RIDGEFIELD-2014-BI-16627CS

PATIENT
  Age: 37 Year
  Sex: Female
  Weight: 55 kg

DRUGS (1)
  1. COMBIVENT [Suspect]
     Indication: COUGH
     Dosage: 5 ML
     Route: 055
     Dates: start: 20131205, end: 20131205

REACTIONS (2)
  - Convulsion [Recovered/Resolved]
  - Tic [Recovered/Resolved]
